FAERS Safety Report 11275953 (Version 1)
Quarter: 2015Q3

REPORT INFORMATION
  Report Type: Report from Study
  Country: US (occurrence: US)
  Receive Date: 20150716
  Receipt Date: 20150716
  Transmission Date: 20151125
  Serious: Yes (Hospitalization)
  Sender: FDA-Public Use
  Company Number: US-BIOGENIDEC-2015BI063539

PATIENT
  Age: 29 Year
  Sex: Female

DRUGS (9)
  1. PROVIGIL [Concomitant]
     Active Substance: MODAFINIL
  2. DRONABINOL. [Concomitant]
     Active Substance: DRONABINOL
  3. EFFEXOR XR SR 24H [Concomitant]
  4. NOVOLOG MIX 70-30 ML VIAL [Concomitant]
  5. LAMICTAL [Concomitant]
     Active Substance: LAMOTRIGINE
  6. NEURONTIN [Concomitant]
     Active Substance: GABAPENTIN
  7. BACLOFEN. [Concomitant]
     Active Substance: BACLOFEN
  8. TECFIDERA [Suspect]
     Active Substance: DIMETHYL FUMARATE
     Indication: MULTIPLE SCLEROSIS
     Route: 048
  9. RAPAFLO [Concomitant]
     Active Substance: SILODOSIN

REACTIONS (2)
  - Bipolar I disorder [Unknown]
  - Post-traumatic stress disorder [Unknown]

NARRATIVE: CASE EVENT DATE: 20150412
